FAERS Safety Report 10973649 (Version 1)
Quarter: 2015Q2

REPORT INFORMATION
  Report Type: Spontaneous
  Country: DE (occurrence: DE)
  Receive Date: 20150401
  Receipt Date: 20150401
  Transmission Date: 20150821
  Serious: Yes (Other)
  Sender: FDA-Public Use
  Company Number: DE-SHIRE-DE201502569

PATIENT

DRUGS (2)
  1. XAGRID [Suspect]
     Active Substance: ANAGRELIDE HYDROCHLORIDE
     Dosage: 0.5 MG (ONE CAPSULE), 1X/DAY:QD  (IN THE EVENING
     Route: 048
     Dates: start: 2009
  2. XAGRID [Suspect]
     Active Substance: ANAGRELIDE HYDROCHLORIDE
     Indication: PRODUCT USED FOR UNKNOWN INDICATION
     Dosage: 1 MG (TWO CAPSULES), 1X/DAY:QD (IN THE MORNING)
     Route: 048
     Dates: start: 2009

REACTIONS (5)
  - Iron deficiency anaemia [Unknown]
  - Hyperparathyroidism secondary [Unknown]
  - Renal cyst [Unknown]
  - Chronic kidney disease [Unknown]
  - Nephrogenic anaemia [Unknown]

NARRATIVE: CASE EVENT DATE: 2015
